FAERS Safety Report 18791168 (Version 1)
Quarter: 2021Q1

REPORT INFORMATION
  Report Type: Spontaneous
  Country: JP (occurrence: JP)
  Receive Date: 20210126
  Receipt Date: 20210126
  Transmission Date: 20210419
  Serious: Yes (Death, Hospitalization)
  Sender: FDA-Public Use
  Company Number: JP-DSJP-DSJ-2021-101702

PATIENT
  Age: 6 Decade
  Sex: Male

DRUGS (11)
  1. TRIMETHOPRIM. [Concomitant]
     Active Substance: TRIMETHOPRIM
     Dosage: 80M/DAY
     Route: 065
  2. ITRACONAZOLE. [Concomitant]
     Active Substance: ITRACONAZOLE
     Dosage: 100M/DAY
     Route: 065
  3. TPN [Suspect]
     Active Substance: AMINO ACIDS\DEXTROSE\ELECTROLYTES NOS\SOYBEAN OIL
     Dosage: UNK
     Route: 065
  4. VALGANCICLOVIR HYDROCHLORIDE. [Concomitant]
     Active Substance: VALGANCICLOVIR HYDROCHLORIDE
     Dosage: 450M/DAY
     Route: 065
  5. ESOMEPRAZOLE MAGNESIUM. [Concomitant]
     Active Substance: ESOMEPRAZOLE MAGNESIUM
     Dosage: 20M/DAY
     Route: 065
  6. SULFAMETHOXAZOLE [Concomitant]
     Active Substance: SULFAMETHOXAZOLE
     Dosage: 400M/DAY
     Route: 065
  7. PYRIDOSTIGMINE BROMIDE. [Concomitant]
     Active Substance: PYRIDOSTIGMINE BROMIDE
     Dosage: 120M/DAY
     Route: 065
  8. LIXIANA TABLETS [Suspect]
     Active Substance: EDOXABAN TOSYLATE
     Indication: DEEP VEIN THROMBOSIS
     Dosage: 30MG/DAY
     Route: 048
  9. LIXIANA TABLETS [Suspect]
     Active Substance: EDOXABAN TOSYLATE
     Indication: PULMONARY EMBOLISM
  10. CICLOSPORIN [Suspect]
     Active Substance: CYCLOSPORINE
     Dosage: 140M/DAY
     Route: 065
  11. PREDNISOLONE. [Suspect]
     Active Substance: PREDNISOLONE
     Dosage: 10M/DAY
     Route: 065

REACTIONS (9)
  - Liver disorder [Unknown]
  - Sepsis [Fatal]
  - Cytomegalovirus infection [Unknown]
  - Malignant pleural effusion [Unknown]
  - Hypoalbuminaemia [Unknown]
  - Pneumonia [Fatal]
  - Paraneoplastic syndrome [Unknown]
  - Clostridium difficile colitis [Unknown]
  - Bacterial infection [Unknown]
